FAERS Safety Report 26135025 (Version 1)
Quarter: 2025Q4

REPORT INFORMATION
  Report Type: Spontaneous
  Country: CN (occurrence: CN)
  Receive Date: 20251209
  Receipt Date: 20251209
  Transmission Date: 20260119
  Serious: Yes (Hospitalization)
  Sender: SHENZHEN TECHDOW PHARMACEUTICAL
  Company Number: CN-adr44030518216-HPR2025000821

PATIENT
  Age: 52 Year
  Sex: Male

DRUGS (3)
  1. ENOXAPARIN SODIUM [Suspect]
     Active Substance: ENOXAPARIN SODIUM
     Indication: Anticoagulant therapy
     Dosage: 0.6ML,QD
     Dates: start: 20251118, end: 20251124
  2. NIMESULIDE [Suspect]
     Active Substance: NIMESULIDE
     Indication: Pain
     Dosage: 100MG,BID
     Dates: start: 20251118, end: 20251124
  3. HERBALS [Suspect]
     Active Substance: HERBALS
     Indication: Pain
     Dosage: 0.9G,TID
     Dates: start: 20251118, end: 20251124

REACTIONS (2)
  - Haematochezia [Unknown]
  - Abdominal pain [Unknown]

NARRATIVE: CASE EVENT DATE: 20251124
